FAERS Safety Report 4617479-2 (Version None)
Quarter: 2005Q1

REPORT INFORMATION
  Report Type: 
  Country: None (occurrence: None)
  Receive Date: 20050324
  Receipt Date: 20050314
  Transmission Date: 20050727
  Serious: Yes (Other)
  Sender: FDA-Public Use
  Company Number: FR-JNJFOC-20050203539

PATIENT
  Sex: Female

DRUGS (5)
  1. REMINYL [Suspect]
     Route: 049
  2. ALDACTONE [Concomitant]
     Route: 065
  3. ZOPICLONE [Concomitant]
     Route: 065
  4. TIAPRIDAL [Concomitant]
     Route: 065
  5. FLUINDIONE [Concomitant]
     Indication: PHLEBITIS
     Route: 065

REACTIONS (1)
  - TRANSAMINASES INCREASED [None]
